FAERS Safety Report 8583675-5 (Version None)
Quarter: 2012Q3

REPORT INFORMATION
  Report Type: 
  Country: None (occurrence: None)
  Receive Date: 20120809
  Receipt Date: 20120712
  Transmission Date: 20120928
  Serious: Yes (Hospitalization, Other)
  Sender: FDA-Public Use
  Company Number: US-009507513-2011SP045605

PATIENT

DRUGS (2)
  1. SYNTHROID [Concomitant]
     Indication: HYPOTHYROIDISM
     Dosage: 0.05 MG, QD
     Route: 048
     Dates: start: 20001201
  2. NUVARING [Suspect]
     Indication: CONTRACEPTION
     Dates: start: 20060101, end: 20080924

REACTIONS (9)
  - PULMONARY EMBOLISM [None]
  - HEPATIC STEATOSIS [None]
  - NECK PAIN [None]
  - THROMBOSIS [None]
  - DRUG HYPERSENSITIVITY [None]
  - DEEP VEIN THROMBOSIS [None]
  - DIARRHOEA [None]
  - BILIARY DYSKINESIA [None]
  - THYROXINE INCREASED [None]
